FAERS Safety Report 7156350-1 (Version None)
Quarter: 2010Q4

REPORT INFORMATION
  Report Type: 
  Country: None (occurrence: None)
  Receive Date: 20101214
  Receipt Date: 20101206
  Transmission Date: 20110411
  Serious: Yes (Hospitalization, Other)
  Sender: FDA-Public Use
  Company Number: US-PFIZER INC-2009213104

PATIENT
  Sex: Male
  Weight: 87 kg

DRUGS (6)
  1. CELEBREX [Suspect]
     Indication: ARTHRITIS
     Dosage: 200 MG, ONCE IN AM AND THEN 12 HOURS LATER IF NEEDED
     Dates: start: 20070401, end: 20070101
  2. CELEBREX [Suspect]
     Dosage: 200 MG, 2X/DAY
     Dates: start: 20090501
  3. LIPITOR [Concomitant]
     Dosage: UNK
  4. LISINOPRIL [Concomitant]
     Dosage: UNK
  5. HYDROCHLOROTHIAZIDE [Concomitant]
     Dosage: UNK
  6. IRON [Concomitant]
     Dosage: UNK

REACTIONS (6)
  - BLADDER CANCER [None]
  - COLONIC POLYP [None]
  - DRUG INEFFECTIVE [None]
  - HAEMATOCRIT DECREASED [None]
  - RED BLOOD CELL COUNT DECREASED [None]
  - WEIGHT DECREASED [None]
